FAERS Safety Report 6753890-1 (Version None)
Quarter: 2010Q2

REPORT INFORMATION
  Report Type: 
  Country: None (occurrence: None)
  Receive Date: 20100520
  Receipt Date: 20090724
  Transmission Date: 20101027
  Serious: Yes (Other)
  Sender: FDA-Public Use
  Company Number: 2009209260

PATIENT
  Age: 62 Year
  Sex: Female

DRUGS (7)
  1. PROVERA [Suspect]
     Indication: HORMONE REPLACEMENT THERAPY
     Dosage: 10 MG, ORAL
     Route: 048
     Dates: start: 19940401, end: 20010201
  2. PREMPRO [Suspect]
     Indication: HORMONE REPLACEMENT THERAPY
     Dosage: 0.625/2.5MG
     Dates: start: 19970101, end: 19980301
  3. PREMARIN [Suspect]
     Indication: HORMONE REPLACEMENT THERAPY
     Dosage: 0.625 MG
     Dates: start: 19940401, end: 20000401
  4. PROMETRIUM [Suspect]
     Indication: HORMONE REPLACEMENT THERAPY
     Dosage: 200 MG
     Dates: start: 19950301, end: 19950901
  5. CYCRIN [Suspect]
     Indication: HORMONE REPLACEMENT THERAPY
     Dosage: 10 MG
     Dates: start: 19950901, end: 19980101
  6. ORTHO-PREFEST (ESTRADIOL, NORGESTIMATE) [Suspect]
     Indication: HORMONE REPLACEMENT THERAPY
     Dates: start: 20000401, end: 20030401
  7. CELEXA [Concomitant]

REACTIONS (1)
  - BREAST CANCER FEMALE [None]
